FAERS Safety Report 10143298 (Version 1)
Quarter: 2014Q2

REPORT INFORMATION
  Report Type: Spontaneous
  Country: GB (occurrence: GB)
  Receive Date: 20140430
  Receipt Date: 20140430
  Transmission Date: 20141212
  Serious: Yes (Other)
  Sender: FDA-Public Use
  Company Number: GB-SA-2014SA050590

PATIENT
  Sex: 0

DRUGS (1)
  1. CLEXANE [Suspect]
     Indication: EMBOLISM VENOUS
     Route: 058

REACTIONS (2)
  - Hyperkalaemia [Unknown]
  - Surgery [Unknown]
